FAERS Safety Report 7923282-8 (Version None)
Quarter: 2011Q4

REPORT INFORMATION
  Report Type: 
  Country: None (occurrence: None)
  Receive Date: 20111117
  Receipt Date: 20110201
  Transmission Date: 20120403
  Serious: No
  Sender: FDA-Public Use
  Company Number: US-AMGEN-USASP2011006047

PATIENT
  Age: 29 Year
  Sex: Female

DRUGS (1)
  1. ENBREL [Suspect]
     Indication: RHEUMATOID ARTHRITIS
     Dosage: 50 MG, QWK
     Dates: start: 20101213, end: 20110128

REACTIONS (8)
  - NECK PAIN [None]
  - ARTHRALGIA [None]
  - HYPOAESTHESIA [None]
  - BACK PAIN [None]
  - DIARRHOEA [None]
  - FATIGUE [None]
  - HOT FLUSH [None]
  - PARAESTHESIA [None]
